FAERS Safety Report 8947861 (Version 1)
Quarter: 2012Q4

REPORT INFORMATION
  Report Type: Spontaneous
  Country: US (occurrence: None)
  Receive Date: 20121203
  Receipt Date: 20121203
  Transmission Date: 20130627
  Serious: Yes (Hospitalization)
  Sender: FDA-Public Use
  Company Number: None

PATIENT
  Age: 54 Year
  Sex: Female
  Weight: 66.5 kg

DRUGS (2)
  1. CETUXIMAB [Suspect]
     Indication: HEAD AND NECK CANCER
     Dosage: 450 mg weekly IV
     Route: 042
  2. RAD001 [Suspect]
     Indication: HEAD AND NECK CANCER
     Dosage: 2.5mg daily oral
     Route: 048

REACTIONS (2)
  - Bronchitis [None]
  - Hypokalaemia [None]
